FAERS Safety Report 10052956 (Version 1)
Quarter: 2014Q2

REPORT INFORMATION
  Report Type: Spontaneous
  Country: US (occurrence: US)
  Receive Date: 20140402
  Receipt Date: 20140402
  Transmission Date: 20141212
  Serious: No
  Sender: FDA-Public Use
  Company Number: US-009507513-1403USA010475

PATIENT
  Sex: Female

DRUGS (1)
  1. DR. SCHOLLS EXTRA THICK CALLUS REMOVERS [Suspect]
     Indication: HYPERKERATOSIS
     Dosage: UNK, UNKNOWN
     Route: 061

REACTIONS (1)
  - Application site irritation [Not Recovered/Not Resolved]
